FAERS Safety Report 19208923 (Version 1)
Quarter: 2021Q2

REPORT INFORMATION
  Report Type: Spontaneous
  Country: US (occurrence: US)
  Receive Date: 20210503
  Receipt Date: 20210503
  Transmission Date: 20210717
  Serious: Yes (Other)
  Sender: FDA-Public Use
  Company Number: US-PFIZER INC-2021448113

PATIENT
  Age: 59 Year
  Sex: Female

DRUGS (1)
  1. XELJANZ XR [Suspect]
     Active Substance: TOFACITINIB CITRATE
     Indication: RHEUMATOID ARTHRITIS
     Dosage: 11 MG, DAILY (1 TAB DAILY)
     Route: 048
     Dates: start: 202005

REACTIONS (6)
  - Asthenia [Recovering/Resolving]
  - Depression [Unknown]
  - Rheumatoid arthritis [Unknown]
  - Fatigue [Recovering/Resolving]
  - Discouragement [Unknown]
  - Pain [Recovering/Resolving]
